FAERS Safety Report 13621088 (Version 3)
Quarter: 2017Q4

REPORT INFORMATION
  Report Type: Spontaneous
  Country: JP (occurrence: JP)
  Receive Date: 20170607
  Receipt Date: 20171226
  Transmission Date: 20180320
  Serious: Yes (Death, Hospitalization, Disabling, Other)
  Sender: FDA-Public Use
  Company Number: JP-BRISTOL-MYERS SQUIBB COMPANY-BMS-2017-048529

PATIENT
  Age: 74 Year
  Sex: Male

DRUGS (3)
  1. BIO-THREE [Concomitant]
     Active Substance: HERBALS
     Indication: PRODUCT USED FOR UNKNOWN INDICATION
     Dosage: UNK, QD
     Route: 065
     Dates: start: 20170119, end: 20170426
  2. REBAMIPIDE [Concomitant]
     Active Substance: REBAMIPIDE
     Indication: PRODUCT USED FOR UNKNOWN INDICATION
     Dosage: UNK
     Route: 065
     Dates: start: 20170105, end: 20170426
  3. OPDIVO [Suspect]
     Active Substance: NIVOLUMAB
     Indication: NON-SMALL CELL LUNG CANCER RECURRENT
     Dosage: 160 MG, Q2WK
     Route: 041
     Dates: start: 20160905, end: 20170315

REACTIONS (5)
  - Autoimmune colitis [Recovered/Resolved]
  - Pneumothorax [Unknown]
  - Colitis [Recovered/Resolved]
  - Interstitial lung disease [Fatal]
  - Pneumonia [Unknown]

NARRATIVE: CASE EVENT DATE: 20170119
